FAERS Safety Report 6338741-1 (Version None)
Quarter: 2009Q3

REPORT INFORMATION
  Report Type: 
  Country: None (occurrence: None)
  Receive Date: 20090831
  Receipt Date: 20090623
  Transmission Date: 20100115
  Serious: Yes (Hospitalization)
  Sender: FDA-Public Use
  Company Number: 199776USA

PATIENT
  Sex: Female

DRUGS (1)
  1. LISINOPRIL AND HYDROCHLOROTHIAZIDE [Suspect]
     Dosage: 12.5/10MG, ORAL
     Route: 048
     Dates: start: 20070701

REACTIONS (13)
  - COUGH [None]
  - DYSPHAGIA [None]
  - DYSPHONIA [None]
  - FATIGUE [None]
  - FEELING ABNORMAL [None]
  - FEELING HOT [None]
  - INCREASED UPPER AIRWAY SECRETION [None]
  - MULTIPLE ALLERGIES [None]
  - OROPHARYNGEAL PAIN [None]
  - PHARYNGEAL ERYTHEMA [None]
  - RESTLESSNESS [None]
  - SINUS DISORDER [None]
  - THROAT IRRITATION [None]
